FAERS Safety Report 4526677-8 (Version None)
Quarter: 2004Q4

REPORT INFORMATION
  Report Type: 
  Country: None (occurrence: None)
  Receive Date: 20041214
  Receipt Date: 20041206
  Transmission Date: 20050328
  Serious: Yes (Other)
  Sender: FDA-Public Use
  Company Number: IE-GLAXOSMITHKLINE-B0360159A

PATIENT
  Age: 33 Year
  Sex: Female

DRUGS (3)
  1. AUGMENTIN '125' [Suspect]
     Indication: RESPIRATORY TRACT INFECTION
     Dosage: 3.6G PER DAY
     Route: 042
     Dates: start: 20041115, end: 20041115
  2. PARACETAMOL [Concomitant]
  3. COMBIVENT [Concomitant]

REACTIONS (4)
  - ARRHYTHMIA [None]
  - CHEST PAIN [None]
  - FLUSHING [None]
  - PRURITUS [None]
